FAERS Safety Report 9999636 (Version 1)
Quarter: 2014Q1

REPORT INFORMATION
  Report Type: Report from Study
  Country: HU (occurrence: HU)
  Receive Date: 20140312
  Receipt Date: 20140312
  Transmission Date: 20141002
  Serious: Yes (Life-Threatening, Hospitalization)
  Sender: FDA-Public Use
  Company Number: HU-BRISTOL-MYERS SQUIBB COMPANY-20418026

PATIENT
  Age: 71 Year
  Sex: Male

DRUGS (3)
  1. CISPLATIN [Suspect]
     Indication: SMALL CELL LUNG CANCER
     Dosage: 03DEC13-03DEC13?06JAN14-06JAN14
     Route: 042
     Dates: start: 20131203
  2. ETOPOSIDE [Suspect]
     Indication: SMALL CELL LUNG CANCER
     Dosage: 03DEC13-05DEC13?06JAN14-08JAN14
     Route: 042
     Dates: start: 20131203
  3. IRBESARTAN [Concomitant]
     Dates: start: 2012

REACTIONS (1)
  - Pancytopenia [Unknown]
